FAERS Safety Report 13010847 (Version 1)
Quarter: 2016Q4

REPORT INFORMATION
  Report Type: Spontaneous
  Country: US (occurrence: US)
  Receive Date: 20161208
  Receipt Date: 20161208
  Transmission Date: 20170207
  Serious: Yes (Hospitalization, Other)
  Sender: FDA-Public Use
  Company Number: US-MYLANLABS-2016M1053408

PATIENT

DRUGS (2)
  1. GEMCITABINE [Suspect]
     Active Substance: GEMCITABINE\GEMCITABINE HYDROCHLORIDE
     Indication: BLADDER TRANSITIONAL CELL CARCINOMA METASTATIC
     Dosage: 1000 MG/M2 ON DAY 1 AND 8 IN A 3 WEEK CYCLE
     Route: 065
     Dates: start: 20040831
  2. CISPLATIN. [Suspect]
     Active Substance: CISPLATIN
     Indication: BLADDER TRANSITIONAL CELL CARCINOMA METASTATIC
     Dosage: 70 MG/M2 ON DAY 1 IN A 3 WEEK CYCLE
     Route: 065
     Dates: start: 20040831

REACTIONS (3)
  - Angioedema [Unknown]
  - Vomiting [Unknown]
  - Nausea [Unknown]
